FAERS Safety Report 4453495-1 (Version None)
Quarter: 2004Q3

REPORT INFORMATION
  Report Type: 
  Country: None (occurrence: None)
  Receive Date: 20040920
  Receipt Date: 20040901
  Transmission Date: 20050211
  Serious: Yes (Hospitalization)
  Sender: FDA-Public Use
  Company Number: FR-MERCK-0409FRA00001

PATIENT
  Age: 80 Year
  Sex: Female
  Weight: 65 kg

DRUGS (17)
  1. ALLOPURINOL [Concomitant]
     Route: 048
  2. AMLODIPINE BESYLATE [Concomitant]
     Route: 048
  3. ATORVASTATIN CALCIUM [Concomitant]
     Indication: HYPERCHOLESTEROLAEMIA
     Route: 048
  4. CALCIUM CARBONATE AND CHOLECALCIFEROL [Concomitant]
     Route: 048
  5. DIGOXIN [Suspect]
     Indication: ATRIAL FIBRILLATION
     Route: 048
  6. DIGOXIN [Suspect]
     Indication: ATRIAL FLUTTER
     Route: 048
  7. DILTIAZEM HYDROCHLORIDE [Suspect]
     Indication: ATRIAL FIBRILLATION
     Route: 048
     Dates: end: 20040706
  8. DILTIAZEM HYDROCHLORIDE [Suspect]
     Indication: ATRIAL FLUTTER
     Route: 048
     Dates: end: 20040706
  9. FLUINDIONE [Concomitant]
     Indication: ATRIAL FIBRILLATION
     Route: 048
     Dates: end: 20040706
  10. FLUINDIONE [Concomitant]
     Indication: ATRIAL FLUTTER
     Route: 048
     Dates: end: 20040706
  11. FUROSEMIDE [Concomitant]
     Route: 048
  12. LEVOTHYROXINE SODIUM [Concomitant]
     Indication: HYPOTHYROIDISM
     Route: 048
  13. OXERUTINS [Concomitant]
     Route: 048
  14. PANTOPRAZOLE [Concomitant]
     Route: 048
  15. PERINDOPRIL ERBUMINE [Suspect]
     Route: 048
  16. POTASSIUM CHLORIDE [Concomitant]
     Route: 048
  17. VIOXX [Suspect]
     Indication: OSTEOARTHRITIS
     Route: 048
     Dates: start: 20040611, end: 20040706

REACTIONS (10)
  - BRADYCARDIA [None]
  - CARDIOACTIVE DRUG LEVEL INCREASED [None]
  - CONDITION AGGRAVATED [None]
  - DRUG INTERACTION [None]
  - ELECTROCARDIOGRAM T WAVE INVERSION [None]
  - MALAISE [None]
  - NAUSEA [None]
  - NODAL ARRHYTHMIA [None]
  - RENAL FAILURE [None]
  - VOMITING [None]
